FAERS Safety Report 18981072 (Version 1)
Quarter: 2021Q1

REPORT INFORMATION
  Report Type: Spontaneous
  Country: GB (occurrence: GB)
  Receive Date: 20210308
  Receipt Date: 20210308
  Transmission Date: 20210420
  Serious: Yes (Other)
  Sender: FDA-Public Use
  Company Number: GB-PFIZER INC-2021209755

PATIENT
  Sex: Male

DRUGS (1)
  1. DOXYCYCLINE MONOHYDRATE [Suspect]
     Active Substance: DOXYCYCLINE
     Dosage: 200 MG

REACTIONS (5)
  - Ocular hyperaemia [Unknown]
  - Dysphonia [Unknown]
  - Urticaria [Unknown]
  - Lip swelling [Unknown]
  - Throat tightness [Unknown]
